FAERS Safety Report 12454873 (Version 2)
Quarter: 2016Q2

REPORT INFORMATION
  Report Type: Report from Study
  Country: KR (occurrence: KR)
  Receive Date: 20160610
  Receipt Date: 20160624
  Transmission Date: 20160815
  Serious: Yes (Hospitalization, Other)
  Sender: FDA-Public Use
  Company Number: KR-GLAXOSMITHKLINE-KR2016065525

PATIENT
  Age: 60 Year
  Sex: Male
  Weight: 44.2 kg

DRUGS (14)
  1. TALION (BEPOTASTINE BESILATE) [Concomitant]
     Indication: PROPHYLAXIS
  2. ADCAL [Concomitant]
     Active Substance: CALCIUM CARBONATE
     Indication: OSTEOPOROSIS
     Dosage: 1 DF, BID
     Route: 048
     Dates: start: 20141127
  3. TRESTAN [Concomitant]
     Active Substance: LYSINE HYDROCHLORIDE
     Indication: DECREASED APPETITE
  4. CODEINE [Concomitant]
     Active Substance: CODEINE
     Indication: CHRONIC OBSTRUCTIVE PULMONARY DISEASE
     Dosage: 20 MG, PRN
     Route: 048
     Dates: start: 20160218, end: 20160504
  5. MUTERAN [Concomitant]
     Active Substance: ACETYLCYSTEINE
     Indication: CHRONIC OBSTRUCTIVE PULMONARY DISEASE
     Dosage: 200 MG, BID
     Route: 048
     Dates: start: 20151122
  6. GASMOTIN [Concomitant]
     Active Substance: MOSAPRIDE CITRATE
     Indication: PROPHYLAXIS
     Dosage: 5 MG, BID
     Route: 048
     Dates: start: 20151122
  7. NUTRIFLEX LIPID PERI INJECTION [Concomitant]
     Route: 042
     Dates: start: 20160510, end: 20160511
  8. FLUTICASONE FUROATE + VILANTEROL TRIFENATATE [Suspect]
     Active Substance: FLUTICASONE FUROATE\VILANTEROL TRIFENATATE
     Indication: CHRONIC OBSTRUCTIVE PULMONARY DISEASE
     Dosage: 1 PUFF(S), QD
     Route: 055
     Dates: start: 20150706
  9. STILLEN [Concomitant]
     Indication: PROPHYLAXIS
     Dosage: 1 TABLET, TID
     Route: 048
     Dates: start: 20141127
  10. TRESTAN [Concomitant]
     Active Substance: LYSINE HYDROCHLORIDE
     Indication: PROPHYLAXIS
     Dosage: 1 DF, BID
     Route: 048
     Dates: start: 20151122
  11. FOSAMAX PLUS-D [Concomitant]
     Indication: OSTEOPOROSIS
     Dosage: 1 DF, WE
     Route: 048
     Dates: start: 20140624
  12. ULTRACET SEMI [Concomitant]
     Indication: LUMBAR SPINAL STENOSIS
     Dosage: 1 DF, TID
     Route: 048
     Dates: start: 20141127
  13. TALION (BEPOTASTINE BESILATE) [Concomitant]
     Indication: RHINORRHOEA
     Route: 048
     Dates: start: 20160504
  14. NUTRIFLEX LIPID PERI INJECTION [Concomitant]
     Indication: NUTRITIONAL SUPPLEMENTATION
     Route: 042
     Dates: start: 20160504, end: 20160508

REACTIONS (2)
  - Chronic obstructive pulmonary disease [Recovered/Resolved]
  - Pneumonia [Recovered/Resolved]

NARRATIVE: CASE EVENT DATE: 20160501
